FAERS Safety Report 5414620-9 (Version None)
Quarter: 2007Q3

REPORT INFORMATION
  Report Type: 
  Country: None (occurrence: None)
  Receive Date: 20070731
  Receipt Date: 20070424
  Transmission Date: 20080115
  Serious: No
  Sender: FDA-Public Use
  Company Number: 2006PV022737

PATIENT
  Age: 53 Year
  Sex: Female
  Weight: 122.5 kg

DRUGS (6)
  1. EXENATIDE(EXENATIDE) PEN, DISPOSABLE [Suspect]
     Indication: TYPE 2 DIABETES MELLITUS
     Dosage: 10 UG, EACH EVENING, SUBCUTANEOUS 10 UG, 2/D, SUBCUTANEOUS 5 UG, 2/D, SUBCUTANEOUS
     Route: 058
     Dates: start: 20060801, end: 20060901
  2. EXENATIDE(EXENATIDE) PEN, DISPOSABLE [Suspect]
     Indication: TYPE 2 DIABETES MELLITUS
     Dosage: 10 UG, EACH EVENING, SUBCUTANEOUS 10 UG, 2/D, SUBCUTANEOUS 5 UG, 2/D, SUBCUTANEOUS
     Route: 058
     Dates: start: 20060901, end: 20060901
  3. EXENATIDE(EXENATIDE) PEN, DISPOSABLE [Suspect]
     Indication: TYPE 2 DIABETES MELLITUS
     Dosage: 10 UG, EACH EVENING, SUBCUTANEOUS 10 UG, 2/D, SUBCUTANEOUS 5 UG, 2/D, SUBCUTANEOUS
     Route: 058
     Dates: start: 20060901, end: 20070417
  4. EXENATIDE(EXENATIDE) PEN, DISPOSABLE [Suspect]
     Indication: TYPE 2 DIABETES MELLITUS
     Dosage: 10 UG, EACH EVENING, SUBCUTANEOUS 10 UG, 2/D, SUBCUTANEOUS 5 UG, 2/D, SUBCUTANEOUS
     Route: 058
     Dates: start: 20070418, end: 20070422
  5. EXENATIDE(EXENATIDE) PEN, DISPOSABLE [Suspect]
     Indication: TYPE 2 DIABETES MELLITUS
     Dosage: 10 UG, EACH EVENING, SUBCUTANEOUS 10 UG, 2/D, SUBCUTANEOUS 5 UG, 2/D, SUBCUTANEOUS
     Route: 058
     Dates: start: 20070423
  6. METFORMIN [Concomitant]

REACTIONS (4)
  - ABDOMINAL DISTENSION [None]
  - DECREASED APPETITE [None]
  - NAUSEA [None]
  - WEIGHT DECREASED [None]
